FAERS Safety Report 6245068-5 (Version None)
Quarter: 2009Q2

REPORT INFORMATION
  Report Type: 
  Country: None (occurrence: None)
  Receive Date: 20090625
  Receipt Date: 20090615
  Transmission Date: 20091009
  Serious: Yes (Hospitalization)
  Sender: FDA-Public Use
  Company Number: US-ELI_LILLY_AND_COMPANY-US200903004008

PATIENT
  Sex: Male
  Weight: 54.422 kg

DRUGS (1)
  1. ZYPREXA [Suspect]
     Indication: ABNORMAL BEHAVIOUR
     Dosage: 2.5 MG, UNK
     Dates: start: 20010101, end: 20070101

REACTIONS (2)
  - PANCREATITIS [None]
  - WEIGHT INCREASED [None]
